FAERS Safety Report 9878508 (Version 2)
Quarter: 2014Q1

REPORT INFORMATION
  Report Type: Spontaneous
  Country: NL (occurrence: NL)
  Receive Date: 20140206
  Receipt Date: 20140218
  Transmission Date: 20141002
  Serious: Yes (Hospitalization)
  Sender: FDA-Public Use
  Company Number: NL-PFIZER INC-2014032573

PATIENT
  Age: 36 Year
  Sex: Female
  Weight: 85 kg

DRUGS (4)
  1. ARTHROTEC [Suspect]
     Indication: PAIN IN JAW
     Dosage: 50MG/200MCG, 2X/DAY
     Dates: start: 20140128, end: 20140129
  2. ARTHROTEC [Interacting]
     Indication: OSTEITIS
  3. LAMICTAL [Interacting]
     Indication: EPILEPSY
     Dosage: 50 MG, 3X/DAY
     Dates: start: 2000
  4. KEPPRA [Interacting]
     Indication: EPILEPSY
     Dosage: 100 MG, 3X/DAY
     Dates: start: 2000

REACTIONS (2)
  - Drug interaction [Recovered/Resolved]
  - Dystonia [Recovered/Resolved]
